FAERS Safety Report 11266996 (Version 1)
Quarter: 2015Q3

REPORT INFORMATION
  Report Type: Spontaneous
  Country: US (occurrence: US)
  Receive Date: 20150713
  Receipt Date: 20150713
  Transmission Date: 20151125
  Serious: Yes (Other)
  Sender: FDA-Public Use
  Company Number: US-PFIZER INC-2015227270

PATIENT
  Age: 23 Year
  Sex: Male

DRUGS (1)
  1. PHENYTOIN SODIUM. [Suspect]
     Active Substance: PHENYTOIN SODIUM
     Indication: POST-TRAUMATIC EPILEPSY
     Dosage: 500 MG DOSE ADMINISTERED OVER A 1-H PERIOD
     Route: 042

REACTIONS (8)
  - Swelling [Unknown]
  - Epidermal necrosis [Unknown]
  - Hyperkeratosis [Unknown]
  - Vein disorder [Recovered/Resolved]
  - Inflammation [Unknown]
  - Rash macular [Unknown]
  - Pain [Unknown]
  - Oedema [Unknown]
